FAERS Safety Report 6301347-4 (Version None)
Quarter: 2009Q3

REPORT INFORMATION
  Report Type: 
  Country: None (occurrence: None)
  Receive Date: 20090807
  Receipt Date: 20090731
  Transmission Date: 20100115
  Serious: Yes (Other)
  Sender: FDA-Public Use
  Company Number: US-PFIZER INC-2009249511

PATIENT
  Sex: Female

DRUGS (7)
  1. PROVERA [Suspect]
     Indication: HORMONE REPLACEMENT THERAPY
     Dosage: 10 MG, UNK
     Route: 048
     Dates: start: 19880629, end: 19880901
  2. PROVERA [Suspect]
     Dosage: 10 MG, UNK
     Dates: start: 19900612, end: 19900712
  3. PREMARIN [Suspect]
     Indication: HORMONE REPLACEMENT THERAPY
     Dosage: 1.25 MG, UNK
     Dates: start: 19890627, end: 19891202
  4. PREMARIN [Suspect]
     Dosage: 1.25 MG, UNK
     Dates: start: 19900312, end: 19900412
  5. PREMARIN [Suspect]
     Dosage: 0.625 MG, UNK
     Dates: start: 19940307, end: 19960512
  6. PREMPRO [Suspect]
     Indication: HORMONE REPLACEMENT THERAPY
     Dosage: 0.625/2.5
     Dates: start: 19960521, end: 20010421
  7. CYCRIN [Suspect]
     Indication: HORMONE REPLACEMENT THERAPY
     Dosage: 2.5 MG, UNK
     Dates: start: 19940331, end: 19941130

REACTIONS (1)
  - BREAST CANCER FEMALE [None]
